FAERS Safety Report 5216128-2 (Version None)
Quarter: 2006Q4

REPORT INFORMATION
  Report Type: 
  Country: None (occurrence: None)
  Receive Date: 20061122
  Receipt Date: 20060712
  Transmission Date: 20070319
  Serious: Yes (Other)
  Sender: FDA-Public Use
  Company Number: 2006086914

PATIENT
  Age: 61 Year
  Sex: Female

DRUGS (2)
  1. LIPITOR [Suspect]
     Indication: BLOOD CHOLESTEROL INCREASED
     Dosage: 10 MG (10 MG, 1 IN 1 D)
     Dates: start: 20060201
  2. HYZAAR (HYDOCHLOROTHIAZIDE, LOSARTAN POTASSIUM) [Concomitant]

REACTIONS (1)
  - BLOOD GLUCOSE INCREASED [None]
